FAERS Safety Report 24560357 (Version 2)
Quarter: 2024Q4

REPORT INFORMATION
  Report Type: Spontaneous
  Country: BR (occurrence: BR)
  Receive Date: 20241029
  Receipt Date: 20241031
  Transmission Date: 20250114
  Serious: Yes (Other)
  Sender: BAYER HEALTHCARE PHARMACEUTICALS INC.
  Company Number: BR-BAYER-2024A152157

PATIENT
  Age: 64 Year
  Sex: Male
  Weight: 82.3 kg

DRUGS (6)
  1. ULTRAVIST [Suspect]
     Active Substance: IOPROMIDE
     Indication: Computerised tomogram
     Dosage: 70 ML, ONCE
     Dates: start: 20240918, end: 20240918
  2. LOSARTAN [Concomitant]
     Active Substance: LOSARTAN
  3. Lodipine [Concomitant]
  4. METOPROLOL SUCCINATE [Concomitant]
     Active Substance: METOPROLOL SUCCINATE
  5. METFORMIN HYDROCHLORIDE [Concomitant]
     Active Substance: METFORMIN HYDROCHLORIDE
  6. INDAPAMIDE ZYDUS [Concomitant]
     Dosage: UNK

REACTIONS (2)
  - Petechiae [Recovered/Resolved]
  - Contrast media allergy [None]

NARRATIVE: CASE EVENT DATE: 20240918
